FAERS Safety Report 12558643 (Version 3)
Quarter: 2016Q3

REPORT INFORMATION
  Report Type: Spontaneous
  Country: FR (occurrence: FR)
  Receive Date: 20160715
  Receipt Date: 20160906
  Transmission Date: 20161109
  Serious: Yes (Death, Hospitalization, Other)
  Sender: FDA-Public Use
  Company Number: FR-AMGEN-FRASP2016090993

PATIENT
  Age: 62 Year
  Sex: Male
  Weight: 74 kg

DRUGS (6)
  1. KYPROLIS [Suspect]
     Active Substance: CARFILZOMIB
     Indication: PLASMA CELL MYELOMA
     Dosage: 36 MG, UNK 2 BOTTLES USED DAY 1 AND DAY 2 OF THE FIRST CYCLE
     Route: 042
     Dates: start: 20160602
  2. DEXAMETHASONE. [Concomitant]
     Active Substance: DEXAMETHASONE
     Dosage: UNK
  3. CEFIXIME. [Concomitant]
     Active Substance: CEFIXIME
     Indication: PNEUMONIA
     Dosage: 2 G, QD
  4. TAZOCILLINE [Concomitant]
     Active Substance: PIPERACILLIN SODIUM\TAZOBACTAM SODIUM
     Indication: PNEUMONIA
     Dosage: UNK
  5. KYPROLIS [Suspect]
     Active Substance: CARFILZOMIB
     Dosage: 36 MG, UNK AT D1 AND D2
     Route: 042
     Dates: start: 20160603, end: 20160604
  6. CORDARONE [Concomitant]
     Active Substance: AMIODARONE HYDROCHLORIDE
     Dosage: UNK

REACTIONS (5)
  - Cardiac arrest [Unknown]
  - Multiple organ dysfunction syndrome [Fatal]
  - Haemodynamic instability [Unknown]
  - Pericardial effusion [Unknown]
  - Bradycardia [Unknown]

NARRATIVE: CASE EVENT DATE: 2016
